FAERS Safety Report 8107401-9 (Version None)
Quarter: 2012Q1

REPORT INFORMATION
  Report Type: 
  Country: None (occurrence: None)
  Receive Date: 20120202
  Receipt Date: 20120130
  Transmission Date: 20120608
  Serious: Yes (Death, Hospitalization, Other)
  Sender: FDA-Public Use
  Company Number: CA-PFIZER INC-2012019162

PATIENT
  Age: 75 Year
  Sex: Male

DRUGS (2)
  1. ARGATROBAN [Suspect]
     Route: 051
  2. HEPARIN SODIUM [Suspect]
     Route: 051

REACTIONS (3)
  - GANGRENE [None]
  - DRUG INEFFECTIVE [None]
  - THROMBOSIS [None]
